FAERS Safety Report 10771906 (Version 1)
Quarter: 2015Q1

REPORT INFORMATION
  Report Type: Spontaneous
  Country: US (occurrence: US)
  Receive Date: 20150206
  Receipt Date: 20150206
  Transmission Date: 20150721
  Serious: Yes (Other)
  Sender: FDA-Public Use
  Company Number: US-JAZZ-2015-US-000931

PATIENT
  Age: 35 Year
  Sex: Female

DRUGS (3)
  1. XYREM [Suspect]
     Active Substance: SODIUM OXYBATE
     Indication: NARCOLEPSY
     Dosage: DOSE ADJUSTMENTS
     Route: 048
  2. XYREM [Suspect]
     Active Substance: SODIUM OXYBATE
     Indication: CATAPLEXY
     Dosage: 2.25 G, BID
     Route: 048
     Dates: start: 201405
  3. XYREM [Suspect]
     Active Substance: SODIUM OXYBATE
     Dosage: 3 G, BID
     Dates: start: 201412, end: 201501

REACTIONS (5)
  - Abasia [Recovering/Resolving]
  - Face injury [Recovering/Resolving]
  - Fall [Unknown]
  - Concussion [Recovering/Resolving]
  - Performance status decreased [Recovering/Resolving]

NARRATIVE: CASE EVENT DATE: 20150116
